FAERS Safety Report 5613753-1 (Version None)
Quarter: 2008Q1

REPORT INFORMATION
  Report Type: 
  Country: None (occurrence: None)
  Receive Date: 20080205
  Receipt Date: 20080130
  Transmission Date: 20080703
  Serious: Yes (Death)
  Sender: FDA-Public Use
  Company Number: US-AVENTIS-200810634US

PATIENT
  Age: 65 Year
  Sex: Male
  Weight: 104 kg

DRUGS (4)
  1. ARAVA [Suspect]
     Indication: RHEUMATOID ARTHRITIS
     Dates: start: 20050201, end: 20051201
  2. ENBREL [Suspect]
     Indication: RHEUMATOID ARTHRITIS
     Dosage: DOSE: 25 MG 2/WEEK
     Route: 058
     Dates: start: 20050701
  3. PARACETAMOL [Concomitant]
     Dosage: DOSE: UNK
     Dates: end: 20050401
  4. CELECOXIB [Concomitant]
     Dosage: DOSE: UNK
     Dates: end: 20050401

REACTIONS (17)
  - ABDOMINAL DISTENSION [None]
  - ABDOMINAL PAIN [None]
  - ARTERIOSCLEROSIS CORONARY ARTERY [None]
  - CONSTIPATION [None]
  - DYSPNOEA [None]
  - FEELING HOT [None]
  - HAEMATOCHEZIA [None]
  - HAEMORRHAGE [None]
  - HAEMORRHOIDS [None]
  - HYPERHIDROSIS [None]
  - INFLAMMATION [None]
  - INSOMNIA [None]
  - LARGE INTESTINE PERFORATION [None]
  - PULMONARY CONGESTION [None]
  - PULMONARY OEDEMA [None]
  - STREPTOCOCCAL SEPSIS [None]
  - VOMITING [None]
